FAERS Safety Report 4282385-2 (Version None)
Quarter: 2004Q1

REPORT INFORMATION
  Report Type: 
  Country: None (occurrence: None)
  Receive Date: 20040114
  Receipt Date: 20031118
  Transmission Date: 20041129
  Serious: Yes (Hospitalization)
  Sender: FDA-Public Use
  Company Number: PHEH2003US10402

PATIENT
  Age: 64 Year
  Sex: Female

DRUGS (7)
  1. SANDOSTATIN LAR [Suspect]
     Indication: CARCINOID SYNDROME
     Dosage: SEE IMAGE
     Route: 030
     Dates: start: 20010901
  2. SANDOSTATIN [Suspect]
     Indication: CARCINOID SYNDROME
     Dosage: SUBCUTANEOUS
     Route: 058
     Dates: start: 20010101, end: 20010901
  3. PREVACID [Concomitant]
  4. VERAPAMIL [Concomitant]
  5. HYDROCHLOROTHIAZIDE [Concomitant]
  6. AMBIEN [Concomitant]
  7. ALLEGRA [Concomitant]

REACTIONS (12)
  - ABDOMINAL PAIN [None]
  - BLOOD ALKALINE PHOSPHATASE INCREASED [None]
  - DIARRHOEA [None]
  - FEEDING TUBE INSERTION [None]
  - FLATULENCE [None]
  - FLUSHING [None]
  - INJECTION SITE OEDEMA [None]
  - INTESTINAL OBSTRUCTION [None]
  - NAUSEA [None]
  - NEOPLASM PROGRESSION [None]
  - VOMITING PROJECTILE [None]
  - WHITE BLOOD CELL COUNT INCREASED [None]
